FAERS Safety Report 6038374-0 (Version None)
Quarter: 2009Q1

REPORT INFORMATION
  Report Type: 
  Country: None (occurrence: None)
  Receive Date: 20090113
  Receipt Date: 20090113
  Transmission Date: 20090719
  Serious: Yes (Life-Threatening, Hospitalization)
  Sender: FDA-Public Use
  Company Number: None

PATIENT
  Age: 44 Year
  Sex: Male
  Weight: 94.8018 kg

DRUGS (1)
  1. PUBLIX NITETIME FREE CHRY 6 HR LIQUOR [Suspect]
     Indication: NASOPHARYNGITIS
     Dosage: 1 TABLE SPOON
     Dates: start: 20080916, end: 20080916

REACTIONS (9)
  - BLISTER [None]
  - DRY SKIN [None]
  - EPISTAXIS [None]
  - IMPAIRED HEALING [None]
  - OROPHARYNGEAL BLISTERING [None]
  - PAIN [None]
  - PAIN OF SKIN [None]
  - PRURITUS [None]
  - SKIN EXFOLIATION [None]
